FAERS Safety Report 5109039-4 (Version None)
Quarter: 2006Q3

REPORT INFORMATION
  Report Type: 
  Country: None (occurrence: None)
  Receive Date: 20060918
  Receipt Date: 20060905
  Transmission Date: 20061208
  Serious: Yes (Hospitalization, Other)
  Sender: FDA-Public Use
  Company Number: 2006104769

PATIENT
  Age: 19 Year
  Sex: Female

DRUGS (4)
  1. PROSTIN E2 [Suspect]
     Indication: LABOUR INDUCTION
     Dosage: 3 MG (12 MG, DAILY), VAGINAL, 3 MG (1 MG, SECOND DOSE), VAGINAL
     Route: 067
     Dates: start: 20060522, end: 20060522
  2. PROSTIN E2 [Suspect]
     Indication: LABOUR INDUCTION
     Dosage: 3 MG (12 MG, DAILY), VAGINAL, 3 MG (1 MG, SECOND DOSE), VAGINAL
     Route: 067
     Dates: start: 20060522, end: 20060522
  3. MEPERIDINE HYDROCHLORIDE [Suspect]
     Indication: DRUG USE FOR UNKNOWN INDICATION
     Dates: start: 20060522
  4. MAXOLON [Suspect]
     Indication: DRUG USE FOR UNKNOWN INDICATION
     Dates: start: 20060522

REACTIONS (4)
  - CAESAREAN SECTION [None]
  - DRUG EXPOSURE DURING PREGNANCY [None]
  - DRUG INEFFECTIVE [None]
  - MATERNAL DISTRESS DURING LABOUR [None]
